FAERS Safety Report 4346882-3 (Version None)
Quarter: 2004Q1

REPORT INFORMATION
  Report Type: 
  Country: None (occurrence: None)
  Receive Date: 20040325
  Receipt Date: 20040202
  Transmission Date: 20041129
  Serious: No
  Sender: FDA-Public Use
  Company Number: USA040258323

PATIENT
  Age: 64 Year
  Sex: Female

DRUGS (6)
  1. FORTEO [Suspect]
     Indication: OSTEOPOROSIS
     Dates: start: 20040123, end: 20040131
  2. SYNTHROID [Concomitant]
  3. LISINOPRIL [Concomitant]
  4. CELEBREX [Concomitant]
  5. NORVASC [Concomitant]
  6. CLONIDINE HCL [Concomitant]

REACTIONS (4)
  - MIGRAINE [None]
  - SPEECH DISORDER [None]
  - VISION BLURRED [None]
  - VISUAL DISTURBANCE [None]
